FAERS Safety Report 5244992-X (Version None)
Quarter: 2007Q1

REPORT INFORMATION
  Report Type: 
  Country: None (occurrence: None)
  Receive Date: 20070221
  Receipt Date: 20070221
  Transmission Date: 20070707
  Serious: Yes (Other)
  Sender: FDA-Public Use
  Company Number: None

PATIENT
  Age: 13 Year
  Sex: Female
  Weight: 34.4734 kg

DRUGS (1)
  1. PREDNISONE [Suspect]
     Indication: INFLAMMATION
     Dosage: 45 MG DAILY ORALLY
     Route: 048
     Dates: start: 20070210, end: 20070215

REACTIONS (3)
  - ARTHRALGIA [None]
  - MYALGIA [None]
  - PAIN [None]
